FAERS Safety Report 8480858-X (Version None)
Quarter: 2012Q2

REPORT INFORMATION
  Report Type: 
  Country: None (occurrence: None)
  Receive Date: 20120622
  Receipt Date: 20120606
  Transmission Date: 20120825
  Serious: Yes (Other)
  Sender: FDA-Public Use
  Company Number: ACO_30625_2012

PATIENT
  Age: 60 Year
  Sex: Female
  Weight: 20 kg

DRUGS (2)
  1. CYMBALTA [Concomitant]
  2. FAMPRIDINE-SR (FAMPRIDINE) TABLET [Suspect]
     Indication: MULTIPLE SCLEROSIS
     Dosage: 10 MG, BID, ORAL
     Route: 048
     Dates: start: 20120525

REACTIONS (2)
  - OVERDOSE [None]
  - PARAESTHESIA [None]
